FAERS Safety Report 8296508-1 (Version None)
Quarter: 2012Q2

REPORT INFORMATION
  Report Type: 
  Country: None (occurrence: None)
  Receive Date: 20120418
  Receipt Date: 20120413
  Transmission Date: 20120825
  Serious: No
  Sender: FDA-Public Use
  Company Number: US-PFIZER INC-2012053908

PATIENT
  Sex: Female
  Weight: 90.703 kg

DRUGS (4)
  1. LISINOPRIL [Concomitant]
     Indication: HYPERTENSION
     Dosage: 5 MG, DAILY
  2. LIPITOR [Suspect]
     Indication: BLOOD CHOLESTEROL INCREASED
     Dosage: UNK
     Route: 048
     Dates: end: 20110101
  3. PRAVACHOL [Suspect]
     Indication: BLOOD CHOLESTEROL INCREASED
     Dosage: 40 MG, UNK
     Route: 048
  4. PRAVACHOL [Suspect]
     Dosage: 80 MG, UNK
     Route: 048

REACTIONS (3)
  - DRUG INTOLERANCE [None]
  - GOUT [None]
  - BLOOD CHOLESTEROL INCREASED [None]
